FAERS Safety Report 11140119 (Version 1)
Quarter: 2015Q2

REPORT INFORMATION
  Report Type: Spontaneous
  Country: US (occurrence: None)
  Receive Date: 20150526
  Receipt Date: 20150526
  Transmission Date: 20150821
  Serious: Yes (Other)
  Sender: FDA-Public Use
  Company Number: None

PATIENT
  Age: 20 Year
  Sex: Female
  Weight: 58.97 kg

DRUGS (1)
  1. XULANE [Suspect]
     Active Substance: ETHINYL ESTRADIOL\NORELGESTROMIN
     Dosage: 1 PATCH PER WEEK APPLIED AS MEDICATED PATCH TO SKIN
     Route: 061

REACTIONS (7)
  - Adverse drug reaction [None]
  - Product substitution issue [None]
  - Vision blurred [None]
  - Headache [None]
  - Movement disorder [None]
  - Nausea [None]
  - Fatigue [None]

NARRATIVE: CASE EVENT DATE: 20140507
